FAERS Safety Report 5669854-5 (Version None)
Quarter: 2008Q1

REPORT INFORMATION
  Report Type: 
  Country: None (occurrence: None)
  Receive Date: 20080317
  Receipt Date: 20080305
  Transmission Date: 20080703
  Serious: Yes (Disabling)
  Sender: FDA-Public Use
  Company Number: DE-PFIZER INC-2007097951

PATIENT
  Sex: Female
  Weight: 78 kg

DRUGS (1)
  1. CHAMPIX [Suspect]
     Indication: SMOKING CESSATION THERAPY
     Route: 048
     Dates: start: 20070905, end: 20071018

REACTIONS (13)
  - APATHY [None]
  - DEPRESSION [None]
  - DISTURBANCE IN ATTENTION [None]
  - DIZZINESS [None]
  - GAIT DISTURBANCE [None]
  - INITIAL INSOMNIA [None]
  - NAUSEA [None]
  - NIGHTMARE [None]
  - SLEEP DISORDER [None]
  - VERTIGO [None]
  - VISION BLURRED [None]
  - VISUAL ACUITY REDUCED [None]
  - VISUAL DISTURBANCE [None]
